FAERS Safety Report 24645575 (Version 1)
Quarter: 2024Q4

REPORT INFORMATION
  Report Type: Spontaneous
  Country: CN (occurrence: CN)
  Receive Date: 20241121
  Receipt Date: 20241121
  Transmission Date: 20250115
  Serious: Yes (Other)
  Sender: SANOFI AVENTIS
  Company Number: CN-SA-2024SA335367

PATIENT
  Age: 61 Year
  Sex: Male
  Weight: 81 kg

DRUGS (1)
  1. CLOPIDOGREL BISULFATE [Suspect]
     Active Substance: CLOPIDOGREL BISULFATE
     Indication: Cerebellar infarction
     Dosage: 75 MG, QD
     Route: 048
     Dates: start: 20241108, end: 20241113

REACTIONS (5)
  - Platelet count increased [Recovering/Resolving]
  - Faeces discoloured [Recovering/Resolving]
  - Rash maculo-papular [Recovering/Resolving]
  - Rash pruritic [Recovering/Resolving]
  - Rash erythematous [Recovering/Resolving]

NARRATIVE: CASE EVENT DATE: 20241113
